FAERS Safety Report 15598815 (Version 1)
Quarter: 2018Q4

REPORT INFORMATION
  Report Type: Spontaneous
  Country: US (occurrence: US)
  Receive Date: 20181108
  Receipt Date: 20181108
  Transmission Date: 20190205
  Serious: Yes (Other)
  Sender: FDA-Public Use
  Company Number: None

PATIENT
  Age: 31 Year
  Sex: Female
  Weight: 135 kg

DRUGS (1)
  1. FLUTICASONE SPR 50MCG [Suspect]
     Active Substance: FLUTICASONE
     Indication: HYPERSENSITIVITY
     Dosage: ?          QUANTITY:2 SPRAY(S);OTHER ROUTE:NASAL SPRAY?
     Dates: start: 20180606, end: 20181101

REACTIONS (5)
  - Oral disorder [None]
  - Pain [None]
  - Swelling face [None]
  - Haemorrhage [None]
  - Epistaxis [None]

NARRATIVE: CASE EVENT DATE: 20180701
